FAERS Safety Report 7592454-7 (Version None)
Quarter: 2011Q3

REPORT INFORMATION
  Report Type: 
  Country: None (occurrence: None)
  Receive Date: 20110706
  Receipt Date: 20110623
  Transmission Date: 20111222
  Serious: Yes (Hospitalization, Other)
  Sender: FDA-Public Use
  Company Number: US-BAYER-2011-015284

PATIENT
  Sex: Female

DRUGS (1)
  1. YAZ [Suspect]
     Indication: PRODUCT USED FOR UNKNOWN INDICATION
     Dosage: UNK
     Dates: start: 20060401, end: 20061201

REACTIONS (20)
  - PAIN [None]
  - DECREASED APPETITE [None]
  - DYSPNOEA [None]
  - GASTRIC DISORDER [None]
  - PANIC ATTACK [None]
  - VOMITING [None]
  - ANXIETY [None]
  - FEAR [None]
  - INJURY [None]
  - CHEST PAIN [None]
  - NAUSEA [None]
  - ANHEDONIA [None]
  - GALLBLADDER INJURY [None]
  - HEART RATE INCREASED [None]
  - ABDOMINAL PAIN UPPER [None]
  - ARRHYTHMIA [None]
  - BLOOD PRESSURE DECREASED [None]
  - SYNCOPE [None]
  - DIARRHOEA [None]
  - SCAR [None]
